FAERS Safety Report 7299816-6 (Version None)
Quarter: 2011Q1

REPORT INFORMATION
  Report Type: 
  Country: None (occurrence: None)
  Receive Date: 20110217
  Receipt Date: 20110214
  Transmission Date: 20110831
  Serious: Yes (Other)
  Sender: FDA-Public Use
  Company Number: US-PFIZER INC-2011032587

PATIENT
  Sex: Male
  Weight: 100.68 kg

DRUGS (5)
  1. GEODON [Suspect]
     Dosage: 40 MG, 2X/DAY
     Route: 048
     Dates: start: 20110201
  2. DIVALPROEX [Suspect]
     Dosage: 1000 MG, 1X/DAY
     Route: 048
     Dates: start: 20101201, end: 20110101
  3. GEMFIBROZIL [Concomitant]
     Dosage: 600 MG, 2X/DAY
  4. ALBUTEROL [Concomitant]
     Dosage: UNK
     Route: 055
  5. IPRATROPIUM [Concomitant]
     Dosage: TWO PUFFS THREE TIMES A DAY
     Route: 055

REACTIONS (10)
  - HAEMORRHAGE SUBCUTANEOUS [None]
  - BLOOD GLUCOSE INCREASED [None]
  - KIDNEY INFECTION [None]
  - MOUTH ULCERATION [None]
  - BALANCE DISORDER [None]
  - FALL [None]
  - GROIN INFECTION [None]
  - LOCALISED INFECTION [None]
  - AGITATION [None]
  - SKIN ULCER [None]
